FAERS Safety Report 10927711 (Version 4)
Quarter: 2015Q4

REPORT INFORMATION
  Report Type: Spontaneous
  Country: US (occurrence: US)
  Receive Date: 20150319
  Receipt Date: 20151012
  Transmission Date: 20160304
  Serious: Yes (Hospitalization, Other)
  Sender: FDA-Public Use
  Company Number: US-UCBSA-2014015842

PATIENT
  Age: 26 Year
  Sex: Female
  Weight: 66 kg

DRUGS (2)
  1. CIMZIA [Suspect]
     Active Substance: CERTOLIZUMAB PEGOL
     Indication: CROHN^S DISEASE
     Dosage: 400 MG, EV 4 WEEKS, EXP DATE: MAR-2017, EXP DATE: MAY-2016
     Dates: start: 20140725, end: 20150706
  2. PREDNISONE. [Concomitant]
     Active Substance: PREDNISONE
     Indication: CROHN^S DISEASE
     Dosage: UNK
     Route: 048

REACTIONS (10)
  - Agitation [Not Recovered/Not Resolved]
  - Breast feeding [Unknown]
  - Drug ineffective [Unknown]
  - Complication of pregnancy [Not Recovered/Not Resolved]
  - Carpal tunnel syndrome [Unknown]
  - Amniotic fluid volume decreased [Unknown]
  - Pregnancy on contraceptive [Recovered/Resolved]
  - Pregnancy [Unknown]
  - Crohn^s disease [Not Recovered/Not Resolved]
  - Caesarean section [Recovered/Resolved]

NARRATIVE: CASE EVENT DATE: 2014
